FAERS Safety Report 22524451 (Version 1)
Quarter: 2023Q2

REPORT INFORMATION
  Report Type: Spontaneous
  Country: JP (occurrence: JP)
  Receive Date: 20230606
  Receipt Date: 20230606
  Transmission Date: 20230722
  Serious: Yes (Death, Hospitalization)
  Sender: FDA-Public Use
  Company Number: JP-TEVA-2023-JP-2894154

PATIENT
  Age: 64 Year
  Sex: Female

DRUGS (2)
  1. PREDNISOLONE [Suspect]
     Active Substance: PREDNISOLONE
     Indication: Immunosuppressant drug therapy
     Route: 048
  2. TACROLIMUS [Suspect]
     Active Substance: TACROLIMUS
     Indication: Immunosuppressant drug therapy
     Route: 048

REACTIONS (5)
  - Systemic candida [Fatal]
  - Multiple organ dysfunction syndrome [Fatal]
  - Cholangitis sclerosing [Recovering/Resolving]
  - Emphysematous cholecystitis [Unknown]
  - Candida infection [Unknown]
